FAERS Safety Report 13197572 (Version 26)
Quarter: 2019Q4

REPORT INFORMATION
  Report Type: Spontaneous
  Country: US (occurrence: US)
  Receive Date: 20170208
  Receipt Date: 20191223
  Transmission Date: 20200122
  Serious: Yes (Death, Hospitalization, Disabling, Other)
  Sender: FDA-Public Use
  Company Number: US-PFIZER INC-2017056055

PATIENT
  Age: 60 Year
  Sex: Male

DRUGS (60)
  1. PHENOBARBITAL. [Concomitant]
     Active Substance: PHENOBARBITAL
     Indication: SEIZURE
     Dosage: UNK
     Dates: start: 2002
  2. PHENOBARBITAL. [Concomitant]
     Active Substance: PHENOBARBITAL
     Dosage: 45 MG, 1X/DAY, IN EVENING
  3. OXCARBAZEPINE. [Concomitant]
     Active Substance: OXCARBAZEPINE
     Indication: SEIZURE
     Dosage: UNK
     Dates: start: 201807
  4. LAMICTAL [Concomitant]
     Active Substance: LAMOTRIGINE
     Dosage: 150 MG, 2X/DAY
  5. VITAMIN D3 [Concomitant]
     Active Substance: CHOLECALCIFEROL
     Dosage: UNK
     Dates: start: 201206
  6. SINEMET [Concomitant]
     Active Substance: CARBIDOPA\LEVODOPA
     Dosage: 25-100 MG , 2X/DAY
     Route: 048
  7. TEGRETOL [Concomitant]
     Active Substance: CARBAMAZEPINE
     Dosage: UNK, 2X/DAY (2 CAPSULES IN THE MORNING AND 2 CAPSULES IN THE EVENING)
     Dates: start: 19800111, end: 20120327
  8. DILANTIN [Suspect]
     Active Substance: PHENYTOIN
     Indication: SEIZURE
     Dosage: 100 MG, UNK
     Route: 048
     Dates: start: 19960327
  9. DILANTIN [Suspect]
     Active Substance: PHENYTOIN
     Dosage: UNK
     Dates: start: 19800111, end: 20050815
  10. DEPAKOTE [Concomitant]
     Active Substance: DIVALPROEX SODIUM
     Indication: SEIZURE
     Dosage: UNK
     Dates: start: 201203, end: 201803
  11. ASPIRIN EC [Concomitant]
     Active Substance: ASPIRIN
     Dosage: UNK, (PERIODICALLY)
  12. HYDROCHLOROTHIAZIDE. [Concomitant]
     Active Substance: HYDROCHLOROTHIAZIDE
     Dosage: 12.5 MG, 1X/DAY, IN MORNING
  13. KRILL OIL PLUS [Concomitant]
     Dosage: 1 DF, 1X/DAY
     Route: 048
  14. TEGRETOL [Concomitant]
     Active Substance: CARBAMAZEPINE
     Indication: EPILEPSY
     Dosage: 200 MG, 4X/DAY
  15. NAMENDA XR [Concomitant]
     Active Substance: MEMANTINE HYDROCHLORIDE
     Dosage: 28 MG, DAILY (EVERY DAY)
     Route: 048
  16. ATACAND [Concomitant]
     Active Substance: CANDESARTAN CILEXETIL
     Indication: SEIZURE
     Dosage: 400 MG, DAILY
  17. DEBROX [Concomitant]
     Active Substance: CARBAMIDE PEROXIDE
     Dosage: UNK
  18. ASPIRIN. [Concomitant]
     Active Substance: ASPIRIN
     Dosage: 81 MG, DAILY
  19. LAMICTAL [Concomitant]
     Active Substance: LAMOTRIGINE
     Dosage: UNK, 2X/DAY (ONE TABLET IN THE MORNING AND ONE AND HALF TABLET IN EVENING)
     Dates: start: 20091231, end: 20180604
  20. PHENOBARBITAL. [Concomitant]
     Active Substance: PHENOBARBITAL
     Dosage: 64.8 MG, 1X/DAY AT BEDTIME (IN PM)
     Route: 048
  21. DONEPEZIL HCL [Concomitant]
     Active Substance: DONEPEZIL HYDROCHLORIDE
     Dosage: 5 MG, 1X/DAY (AT BEDTIME)
     Route: 048
  22. SUPER B COMPLEX [Concomitant]
     Active Substance: CYANOCOBALAMIN\DEXPANTHENOL\NIACINAMIDE\PYRIDOXINE HYDROCHLORIDE\RIBOFLAVIN 5^-PHOSPHATE SODIUM\THIAMINE HYDROCHLORIDE\VITAMIN B COMPLEX
     Dosage: UNK, 1X/DAY (1 IN AM)
  23. VITAMIN D [Concomitant]
     Active Substance: VITAMIN D NOS
     Dosage: 5000 UNK, DAILY
  24. PHENOBARBITAL. [Concomitant]
     Active Substance: PHENOBARBITAL
     Dosage: 30 MG, 4X/DAY
  25. LAMOTRIGINE. [Concomitant]
     Active Substance: LAMOTRIGINE
     Dosage: 2.5 DF, 2X/DAY (1 TABLET IN AM, 1.5 TABLETS IN PM)
  26. ZONISAMIDE. [Concomitant]
     Active Substance: ZONISAMIDE
     Indication: SEIZURE
     Dosage: UNK
     Dates: start: 201805
  27. ASPIRIN EC [Concomitant]
     Active Substance: ASPIRIN
     Indication: PAIN
     Dosage: 81 MG, 1X/DAY IN EVERY EVENING (IN PM)
     Route: 048
  28. NAMENDA [Concomitant]
     Active Substance: MEMANTINE HYDROCHLORIDE
     Dosage: 10 MG, 2X/DAY
     Route: 048
  29. DILANTIN [Suspect]
     Active Substance: PHENYTOIN
     Dosage: 100 MG, UNK
     Route: 048
     Dates: end: 2005
  30. DILANTIN [Suspect]
     Active Substance: PHENYTOIN
     Indication: SEIZURE
     Dosage: UNK
     Dates: start: 1965, end: 2005
  31. DEPAKOTE [Concomitant]
     Active Substance: DIVALPROEX SODIUM
     Dosage: UNK, 2X/DAY
     Dates: start: 20100425, end: 20180604
  32. DIVALPROEX SODIUM ER [Concomitant]
     Active Substance: DIVALPROEX SODIUM
     Dosage: 500 MG, 2X/DAY
     Route: 048
  33. LAMICTAL [Concomitant]
     Active Substance: LAMOTRIGINE
     Dosage: 200 MG, UNK
  34. LUTEIN-ZEAXANTHIN [Concomitant]
     Dosage: 1-6 MG, 1X/DAY
  35. PRAVASTATIN SODIUM. [Concomitant]
     Active Substance: PRAVASTATIN SODIUM
     Dosage: 40 MG, 1X/DAY
  36. ARICEPT [Concomitant]
     Active Substance: DONEPEZIL HYDROCHLORIDE
     Dosage: 10 MG, 2X/DAY
  37. ZOLOFT [Concomitant]
     Active Substance: SERTRALINE HYDROCHLORIDE
     Dosage: 100 MG, 2X/DAY (2 AT NIGHT)
     Route: 048
  38. HYDROCHLOROTH [Concomitant]
     Active Substance: HYDROCHLOROTHIAZIDE
     Dosage: 12.5 MG, 1X/DAY (IN AM)
  39. PRAVASTATIN. [Concomitant]
     Active Substance: PRAVASTATIN
     Dosage: 40 MG, 1X/DAY (IN PM)
  40. BUSPAR [Concomitant]
     Active Substance: BUSPIRONE HYDROCHLORIDE
     Dosage: UNK
  41. DILANTIN [Suspect]
     Active Substance: PHENYTOIN
     Indication: SEIZURE
     Dosage: UNK
     Route: 048
     Dates: start: 19800111
  42. PHENOBARBITAL. [Concomitant]
     Active Substance: PHENOBARBITAL
     Dosage: UNK, 1X/DAY (ONCE DAILY IN THE EVENING)
     Dates: start: 19871214, end: 20180604
  43. PHENOBARBITAL. [Concomitant]
     Active Substance: PHENOBARBITAL
     Dosage: 64.8 MG AND 300 MG, 2X/DAY
  44. CARBATROL [Concomitant]
     Active Substance: CARBAMAZEPINE
     Dosage: 4 DF, 2X/DAY (2 CAPSULES IN AM, 2 IN PM)
  45. DEPAKOTE [Concomitant]
     Active Substance: DIVALPROEX SODIUM
     Dosage: 500 MG, 2X/DAY
  46. LAMOTRIGINE. [Concomitant]
     Active Substance: LAMOTRIGINE
     Indication: SEIZURE
     Dosage: 150 MG, 1X/DAY (EVERY EVENING)
     Route: 048
     Dates: start: 2010
  47. VITAMIN D3 [Concomitant]
     Active Substance: CHOLECALCIFEROL
     Indication: ROUTINE HEALTH MAINTENANCE
     Dosage: 5000 IU, 1X/DAY
  48. SINEMET [Concomitant]
     Active Substance: CARBIDOPA\LEVODOPA
     Dosage: 1 DF (25/100), 4X/DAY
  49. COENZYME Q10 [Concomitant]
     Active Substance: UBIDECARENONE
     Dosage: 100 MG, 1X/DAY
  50. ARICEPT [Concomitant]
     Active Substance: DONEPEZIL HYDROCHLORIDE
     Dosage: 5 MG, 1X/DAY (EVERY BEDTIME)
     Route: 048
  51. OCUVITE EXTRA [Concomitant]
     Indication: MACULAR DEGENERATION
     Dosage: 1 DF, DAILY
     Route: 048
  52. OCUVITE EXTRA [Concomitant]
     Dosage: UNK
     Dates: start: 2015
  53. LAMICTAL [Concomitant]
     Active Substance: LAMOTRIGINE
     Indication: SEIZURE
     Dosage: 1/2 QAM, 1QPM
  54. LAMICTAL [Concomitant]
     Active Substance: LAMOTRIGINE
     Dosage: UNK
  55. LEVODOPA-CARBIDOPA [Concomitant]
     Active Substance: CARBIDOPA\LEVODOPA
     Dosage: 25-100 MG, 2 TABLETS BY MOUTH 4 TIMES DAILY
     Route: 048
  56. MEMANTINE. [Concomitant]
     Active Substance: MEMANTINE
     Dosage: 10 MG, 2X/DAY
     Route: 048
  57. TOPROL XL [Concomitant]
     Active Substance: METOPROLOL SUCCINATE
     Indication: SEIZURE
     Dosage: UNK, 2X/DAY
  58. SUPPLEMENT B COMPLEX [Concomitant]
     Dosage: UNK
  59. VITAMIN C [Concomitant]
     Active Substance: ASCORBIC ACID
     Dosage: 1000 MG, 1X/DAY (IN AM)
  60. MECLIZINE [Concomitant]
     Active Substance: MECLIZINE HYDROCHLORIDE
     Dosage: 25 MG, AS NEEDED

REACTIONS (25)
  - Amnesia [Unknown]
  - Gait disturbance [Unknown]
  - Coordination abnormal [Unknown]
  - Neuropathy peripheral [Unknown]
  - Headache [Unknown]
  - Tremor [Unknown]
  - Cerebellar atrophy [Unknown]
  - Cerebral atrophy [Unknown]
  - Dizziness [Unknown]
  - Neoplasm malignant [Unknown]
  - Speech disorder [Unknown]
  - Memory impairment [Unknown]
  - Cerebellar ataxia [Unknown]
  - Aphasia [Unknown]
  - Microangiopathy [Unknown]
  - Dyskinesia [Unknown]
  - Cervical spinal stenosis [Unknown]
  - Cerebral arteriosclerosis [Unknown]
  - Drug hypersensitivity [Unknown]
  - Muscular weakness [Unknown]
  - Vision blurred [Unknown]
  - Balance disorder [Unknown]
  - Depression [Unknown]
  - Mental impairment [Unknown]
  - Facial paralysis [Unknown]

NARRATIVE: CASE EVENT DATE: 20091230
